FAERS Safety Report 9142317 (Version 1)
Quarter: 2013Q1

REPORT INFORMATION
  Report Type: Spontaneous
  Country: US (occurrence: US)
  Receive Date: 20130306
  Receipt Date: 20130306
  Transmission Date: 20140127
  Serious: Yes (Other)
  Sender: FDA-Public Use
  Company Number: US-AMGEN-USASP2013013871

PATIENT
  Age: 55 Year
  Sex: Female

DRUGS (3)
  1. ENBREL [Suspect]
     Indication: RHEUMATOID ARTHRITIS
     Dosage: 50 MG, QWK
     Dates: start: 20110620
  2. METHOTREXATE [Concomitant]
     Dosage: 7.5 MG, QWK
     Dates: start: 2005
  3. PREDNISONE [Concomitant]
     Dosage: 60 MG, UNK
     Dates: start: 201302

REACTIONS (3)
  - Arthralgia [Not Recovered/Not Resolved]
  - Bronchitis viral [Not Recovered/Not Resolved]
  - Atypical pneumonia [Not Recovered/Not Resolved]
